FAERS Safety Report 16809446 (Version 1)
Quarter: 2019Q4

REPORT INFORMATION
  Report Type: Spontaneous
  Country: US (occurrence: US)
  Receive Date: 20190915
  Receipt Date: 20190915
  Transmission Date: 20200122
  Serious: Yes (Other)
  Sender: FDA-Public Use
  Company Number: None

PATIENT
  Age: 57 Year
  Sex: Female

DRUGS (4)
  1. ZOFRAN ODT 8 MG [Concomitant]
     Dates: start: 20190831
  2. ACETAMINOPHEN 325MG [Concomitant]
     Dates: start: 20190820
  3. SUTENT [Suspect]
     Active Substance: SUNITINIB MALATE
     Indication: RENAL CELL CARCINOMA
     Route: 048
     Dates: start: 20190829
  4. IMODIUM [Concomitant]
     Active Substance: LOPERAMIDE HYDROCHLORIDE
     Dates: start: 20190831

REACTIONS (8)
  - Blood pressure increased [None]
  - Skin erosion [None]
  - Abdominal discomfort [None]
  - Stomatitis [None]
  - Vomiting [None]
  - Diarrhoea [None]
  - Hypoaesthesia [None]
  - Nausea [None]

NARRATIVE: CASE EVENT DATE: 20190831
